FAERS Safety Report 8832218 (Version 2)
Quarter: 2012Q4

REPORT INFORMATION
  Report Type: 
  Country: US (occurrence: US)
  Receive Date: 20121009
  Receipt Date: 20121017
  Transmission Date: 20130627
  Serious: No
  Sender: FDA-Public Use
  Company Number: US-VERTEX PHARMACEUTICAL INC.-2012-022142

PATIENT
  Age: 67 None
  Sex: Female
  Weight: 68 kg

DRUGS (3)
  1. INCIVEK [Suspect]
     Indication: HEPATITIS C
     Dosage: 750 mg, tid
     Route: 048
     Dates: start: 20120920
  2. RIBAVIRIN [Suspect]
     Indication: HEPATITIS C
     Dosage: 2 pills AM, 3 pills PM
     Route: 048
     Dates: start: 20120920
  3. UNSPECIFIED INGREDIENT [Suspect]
     Indication: HEPATITIS C
     Dosage: 180 ?g, UNK
     Route: 058
     Dates: start: 20120920

REACTIONS (9)
  - Pollakiuria [Unknown]
  - Influenza like illness [Not Recovered/Not Resolved]
  - Dysphonia [Recovered/Resolved]
  - Pain [None]
  - Constipation [Not Recovered/Not Resolved]
  - Fatigue [Not Recovered/Not Resolved]
  - Asthenia [Not Recovered/Not Resolved]
  - Frequent bowel movements [Not Recovered/Not Resolved]
  - Nausea [Not Recovered/Not Resolved]
